FAERS Safety Report 6994280-6 (Version None)
Quarter: 2010Q3

REPORT INFORMATION
  Report Type: 
  Country: None (occurrence: None)
  Receive Date: 20100917
  Receipt Date: 20100909
  Transmission Date: 20110219
  Serious: Yes (Hospitalization, Other)
  Sender: FDA-Public Use
  Company Number: US-ELI_LILLY_AND_COMPANY-US201009002480

PATIENT
  Sex: Male

DRUGS (1)
  1. HUMALOG MIX 75/25 [Suspect]
     Indication: TYPE 1 DIABETES MELLITUS
     Dosage: 25 U, 3/D

REACTIONS (8)
  - BLOOD GLUCOSE INCREASED [None]
  - DYSPEPSIA [None]
  - HYPERTENSION [None]
  - NEUROPATHY PERIPHERAL [None]
  - OSTEOMYELITIS [None]
  - PULMONARY EMBOLISM [None]
  - VISUAL IMPAIRMENT [None]
  - WOUND [None]
